FAERS Safety Report 4759172-1 (Version None)
Quarter: 2005Q3

REPORT INFORMATION
  Report Type: 
  Country: None (occurrence: None)
  Receive Date: 20050831
  Receipt Date: 20050811
  Transmission Date: 20060218
  Serious: Yes (Other)
  Sender: FDA-Public Use
  Company Number: GBS050818091

PATIENT
  Age: 8 Year
  Sex: Male
  Weight: 27 kg

DRUGS (2)
  1. STRATTERA [Suspect]
     Indication: ATTENTION DEFICIT/HYPERACTIVITY DISORDER
     Dates: start: 20050415, end: 20050707
  2. METHYLPHENIDATE HCL [Concomitant]

REACTIONS (3)
  - AGGRESSION [None]
  - ANGER [None]
  - CONDITION AGGRAVATED [None]
